FAERS Safety Report 4383015-1 (Version None)
Quarter: 2004Q2

REPORT INFORMATION
  Report Type: 
  Country: None (occurrence: None)
  Receive Date: 20040526
  Receipt Date: 20040220
  Transmission Date: 20050107
  Serious: Yes (Hospitalization, Other)
  Sender: FDA-Public Use
  Company Number: US_010770104

PATIENT
  Age: 44 Year
  Sex: Female
  Weight: 136 kg

DRUGS (16)
  1. HUMULIN N [Suspect]
     Indication: DIABETES MELLITUS
     Dosage: 80 U/DAY
     Dates: start: 19840101
  2. PROZAC [Suspect]
     Indication: DEPRESSION
     Dates: start: 19920101
  3. ZYPREXA [Suspect]
  4. PHENTERMINE [Concomitant]
  5. PONDIMIN [Concomitant]
  6. LEVOTHYROXINE SODIUM [Concomitant]
  7. THYROID TAB [Concomitant]
  8. GLUCOPHAGE [Concomitant]
  9. AVANDIA [Concomitant]
  10. MULTIVITAMIN [Concomitant]
  11. MAGNESIUM [Concomitant]
  12. CHROMIUM [Concomitant]
  13. REDUX [Concomitant]
  14. NOVOLIN (INSULIN HUMAN INJECTION, ISOPHANE) [Concomitant]
  15. SEROQUEL [Concomitant]
  16. PROZAC [Concomitant]

REACTIONS (31)
  - ALOPECIA [None]
  - ANXIETY [None]
  - ASTHMA [None]
  - BLOOD GLUCOSE INCREASED [None]
  - BLOOD THYROID STIMULATING HORMONE DECREASED [None]
  - DEPRESSION [None]
  - DIARRHOEA [None]
  - EATING DISORDER [None]
  - GOITRE [None]
  - HAIR TEXTURE ABNORMAL [None]
  - HALLUCINATION [None]
  - HEADACHE [None]
  - HYPOTHYROIDISM [None]
  - INSULIN RESISTANCE [None]
  - IODINE ALLERGY [None]
  - IRON METABOLISM DISORDER [None]
  - LOWER LIMB FRACTURE [None]
  - MENTAL DISORDER [None]
  - NAUSEA [None]
  - NEGATIVISM [None]
  - PAIN [None]
  - PALPITATIONS [None]
  - PERNICIOUS ANAEMIA [None]
  - PHARYNGOLARYNGEAL PAIN [None]
  - ROAD TRAFFIC ACCIDENT [None]
  - SKIN ULCER [None]
  - STOMACH DISCOMFORT [None]
  - THYROID NEOPLASM [None]
  - VOMITING [None]
  - WEIGHT DECREASED [None]
  - WEIGHT INCREASED [None]
